FAERS Safety Report 19571551 (Version 3)
Quarter: 2021Q3

REPORT INFORMATION
  Report Type: Spontaneous
  Country: JP (occurrence: JP)
  Receive Date: 20210715
  Receipt Date: 20210824
  Transmission Date: 20211014
  Serious: Yes (Other)
  Sender: FDA-Public Use
  Company Number: JP-SA-2021SA229274

PATIENT
  Age: 85 Year
  Sex: Male

DRUGS (7)
  1. EURAX [Concomitant]
     Active Substance: CROTAMITON
     Indication: DERMATITIS ATOPIC
     Dosage: 49.5 G, SEVERAL TIMES
     Route: 061
     Dates: start: 20210608
  2. LEVOMENTHOL [Concomitant]
     Active Substance: LEVOMENTHOL
     Indication: DERMATITIS ATOPIC
     Dosage: 0.5 G, SEVERAL TIMES
     Route: 065
     Dates: start: 20210608
  3. HIRUDOID [Concomitant]
     Active Substance: GLYCOSAMINOGLYCANS
     Indication: DERMATITIS ATOPIC
     Dosage: UNK UNK, QD
     Route: 061
     Dates: start: 20210608
  4. MYSER [DIFLUPREDNATE] [Concomitant]
     Dosage: DAILY DOSE: 10 G
     Route: 061
     Dates: start: 2021
  5. BILANOA [Concomitant]
     Active Substance: BILASTINE
     Indication: DERMATITIS ATOPIC
     Dosage: 20 MG, QD
     Route: 065
     Dates: start: 20210608
  6. DUPIXENT [Suspect]
     Active Substance: DUPILUMAB
     Indication: DERMATITIS ATOPIC
     Dosage: 300 MG, BID
     Route: 058
     Dates: start: 20210629, end: 20210629
  7. MYSER [DIFLUPREDNATE] [Concomitant]
     Indication: DERMATITIS ATOPIC
     Dosage: UNK, QD
     Route: 061
     Dates: start: 20210608

REACTIONS (9)
  - Dermatitis exfoliative generalised [Recovering/Resolving]
  - Erythema [Recovering/Resolving]
  - Pruritus [Recovering/Resolving]
  - Condition aggravated [Recovering/Resolving]
  - Oedema peripheral [Recovered/Resolved with Sequelae]
  - Pyrexia [Recovered/Resolved]
  - Oedema peripheral [Recovering/Resolving]
  - Pyrexia [Recovering/Resolving]
  - Cardiovascular symptom [Unknown]

NARRATIVE: CASE EVENT DATE: 20210630
